FAERS Safety Report 4307712-9 (Version None)
Quarter: 2004Q1

REPORT INFORMATION
  Report Type: 
  Country: None (occurrence: None)
  Receive Date: 20040225
  Receipt Date: 20030520
  Transmission Date: 20041129
  Serious: Yes (Other)
  Sender: FDA-Public Use
  Company Number: WAES 0305USA02121

PATIENT
  Age: 69 Year
  Sex: Male
  Weight: 112.4921 kg

DRUGS (8)
  1. ZOCOR [Suspect]
     Dosage: 20 MG/DAILY/PO
     Route: 048
     Dates: start: 20021216, end: 20030516
  2. ZOCOR [Suspect]
     Dosage: 10 MG/DAILY/PO
     Route: 048
     Dates: end: 20021215
  3. AMARYL [Concomitant]
  4. AVANDIA [Concomitant]
  5. MONOPRIL [Concomitant]
  6. CYANOCOBALAMIN [Concomitant]
  7. METFORMIN HCL [Concomitant]
  8. VITAMINS (UNSPECIFIED) [Concomitant]

REACTIONS (6)
  - ARTHRITIS [None]
  - ASTHENIA [None]
  - FEELING JITTERY [None]
  - MUSCLE CRAMP [None]
  - MYALGIA [None]
  - RESPIRATORY TRACT INFECTION [None]
